FAERS Safety Report 21937302 (Version 1)
Quarter: 2023Q1

REPORT INFORMATION
  Report Type: Spontaneous
  Country: GB (occurrence: GB)
  Receive Date: 20230201
  Receipt Date: 20230201
  Transmission Date: 20230417
  Serious: Yes (Hospitalization)
  Sender: FDA-Public Use
  Company Number: GB-Accord-296224

PATIENT
  Age: 66 Year
  Sex: Male

DRUGS (10)
  1. BUMETANIDE [Suspect]
     Active Substance: BUMETANIDE
     Indication: Amyloidosis
     Dosage: 4 MILLIGRAM DAILY;
     Route: 048
     Dates: start: 202206
  2. EPLERENONE [Suspect]
     Active Substance: EPLERENONE
     Indication: Amyloidosis
     Dosage: 50 MILLIGRAM DAILY;
     Route: 048
     Dates: start: 202106
  3. LANSOPRAZOLE [Suspect]
     Active Substance: LANSOPRAZOLE
     Indication: Angina pectoris
     Dosage: 30 MILLIGRAM DAILY;
     Route: 048
  4. RAMIPRIL [Suspect]
     Active Substance: RAMIPRIL
     Indication: Angina pectoris
     Dosage: 5 MILLIGRAM DAILY;
     Route: 048
     Dates: start: 202106
  5. SACUBITRIL [Suspect]
     Active Substance: SACUBITRIL
     Indication: Amyloidosis
     Dosage: 48 MILLIGRAM DAILY;
     Route: 048
     Dates: start: 202106
  6. ATORVASTATIN [Concomitant]
     Active Substance: ATORVASTATIN
     Indication: Hypercholesterolaemia
     Dosage: 80 MILLIGRAM DAILY;
     Route: 048
  7. APIXABAN [Concomitant]
     Active Substance: APIXABAN
     Indication: Anticoagulant therapy
     Dosage: 10 MILLIGRAM DAILY;
     Route: 048
     Dates: start: 20200912
  8. CHLORTHALIDONE [Concomitant]
     Active Substance: CHLORTHALIDONE
     Indication: Cardiac failure
     Dosage: 50 MILLIGRAM DAILY;
     Route: 048
     Dates: start: 202111
  9. DAPAGLIFLOZIN [Concomitant]
     Active Substance: DAPAGLIFLOZIN
     Indication: Amyloidosis
     Dosage: 10 MILLIGRAM DAILY;
     Route: 048
     Dates: start: 202106
  10. FERROUS SULFATE [Concomitant]
     Active Substance: FERROUS SULFATE
     Indication: Anaemia
     Dosage: 200 MILLIGRAM DAILY;
     Route: 048

REACTIONS (1)
  - Acute kidney injury [Not Recovered/Not Resolved]

NARRATIVE: CASE EVENT DATE: 20221124
